FAERS Safety Report 8745758 (Version 3)
Quarter: 2013Q1

REPORT INFORMATION
  Report Type: Spontaneous
  Country: US (occurrence: US)
  Receive Date: 20120827
  Receipt Date: 20130116
  Transmission Date: 20140127
  Serious: Yes (Hospitalization)
  Sender: FDA-Public Use
  Company Number: US-MERCK-1208USA008367

PATIENT
  Age: 58 Year
  Sex: Female

DRUGS (7)
  1. JANUVIA [Suspect]
     Indication: DIABETES MELLITUS
     Dosage: 100 MG, QD
     Route: 048
     Dates: start: 20120519, end: 20120606
  2. PLAVIX [Concomitant]
  3. LISINOPRIL [Concomitant]
  4. GLIMEPIRIDE [Concomitant]
  5. ISOSORBIDE [Concomitant]
  6. CRESTOR [Concomitant]
  7. GLUCOPHAGE [Concomitant]

REACTIONS (1)
  - Pancreatitis [Recovering/Resolving]
